FAERS Safety Report 10828572 (Version 1)
Quarter: 2015Q1

REPORT INFORMATION
  Report Type: Report from Study
  Country: PR (occurrence: PR)
  Receive Date: 20150219
  Receipt Date: 20150219
  Transmission Date: 20150721
  Serious: No
  Sender: FDA-Public Use
  Company Number: PR-ABBVIE-14P-131-1279994-00

PATIENT
  Age: 16 Year
  Sex: Female
  Weight: 46.31 kg

DRUGS (4)
  1. FOLIC ACID. [Concomitant]
     Active Substance: FOLIC ACID
     Indication: PRODUCT USED FOR UNKNOWN INDICATION
  2. METHOTREXATE [Concomitant]
     Active Substance: METHOTREXATE
     Indication: PRODUCT USED FOR UNKNOWN INDICATION
  3. NAPROXEN. [Concomitant]
     Active Substance: NAPROXEN
     Indication: PRODUCT USED FOR UNKNOWN INDICATION
  4. HUMIRA [Suspect]
     Active Substance: ADALIMUMAB
     Indication: RHEUMATOID ARTHRITIS
     Route: 058
     Dates: start: 20140823

REACTIONS (1)
  - Injection site pain [Recovered/Resolved]

NARRATIVE: CASE EVENT DATE: 20140823
